FAERS Safety Report 4370645-6 (Version None)
Quarter: 2004Q2

REPORT INFORMATION
  Report Type: 
  Country: None (occurrence: None)
  Receive Date: 20040525
  Receipt Date: 20040510
  Transmission Date: 20050107
  Serious: Yes (Hospitalization)
  Sender: FDA-Public Use
  Company Number: DE-JNJFOC-20040501832

PATIENT
  Age: 75 Year
  Sex: Female
  Weight: 58.8 kg

DRUGS (3)
  1. REMINYL [Suspect]
     Indication: DEMENTIA
     Dosage: 8 MG, 2 IN 1 DAY, ORAL
     Route: 048
  2. ACETYLSALICYLIC ACID SRT [Suspect]
     Indication: CEREBRAL ATHEROSCLEROSIS
     Dosage: 100 MG, 1 IN 1 DAY, ORAL
     Route: 048
     Dates: end: 20031121
  3. CORINFAR (NIFEDIPINE) TABLETS [Suspect]
     Indication: HYPERTENSION
     Dosage: 10 MG, 2 IN 1 DAY, ORAL
     Route: 048
     Dates: end: 20031121

REACTIONS (6)
  - ANAEMIA [None]
  - DIVERTICULUM INTESTINAL [None]
  - GASTROINTESTINAL HAEMORRHAGE [None]
  - HIATUS HERNIA [None]
  - REFLUX OESOPHAGITIS [None]
  - TINNITUS [None]
